FAERS Safety Report 15272563 (Version 1)
Quarter: 2018Q3

REPORT INFORMATION
  Report Type: Report from Study
  Country: TN (occurrence: TN)
  Receive Date: 20180813
  Receipt Date: 20180813
  Transmission Date: 20181010
  Serious: Yes (Death)
  Sender: FDA-Public Use
  Company Number: TN-SA-2018SA148047

PATIENT
  Age: 69 Year
  Sex: Male

DRUGS (7)
  1. ASL NORMON [Concomitant]
     Route: 048
  2. ENOXAPARIN [Concomitant]
     Active Substance: ENOXAPARIN
     Route: 058
  3. AMIODARONE [Concomitant]
     Active Substance: AMIODARONE
     Route: 048
  4. CAPTOPRIL. [Concomitant]
     Active Substance: CAPTOPRIL
     Route: 048
  5. CLOPIDOGREL BISULFATE. [Suspect]
     Active Substance: CLOPIDOGREL BISULFATE
     Indication: MYOCARDIAL INFARCTION
     Dosage: 75 MG, QD
     Route: 048
     Dates: start: 20170919, end: 20180215
  6. ATORVASTATIN [Concomitant]
     Active Substance: ATORVASTATIN
     Route: 048
  7. OMEPRAZOLE. [Concomitant]
     Active Substance: OMEPRAZOLE
     Route: 048

REACTIONS (3)
  - Chest pain [Unknown]
  - Cardiac arrest [Fatal]
  - Respiratory distress [Unknown]

NARRATIVE: CASE EVENT DATE: 20180215
